FAERS Safety Report 6680408 (Version 2)
Quarter: 2013Q2

REPORT INFORMATION
  Report Type: Spontaneous
  Country: ES (occurrence: ES)
  Receive Date: 20080625
  Receipt Date: 20130530
  Transmission Date: 20140414
  Serious: Yes (Hospitalization)
  Sender: FDA-Public Use
  Company Number: ES-ELI_LILLY_AND_COMPANY-ES200806003606

PATIENT
  Age: 84 Year
  Sex: Male

DRUGS (1)
  1. FORSTEO [Suspect]
     Indication: OSTEOPOROSIS
     Dosage: 20 UG, UNKNOWN
     Route: 058
     Dates: start: 200805

REACTIONS (2)
  - Respiratory disorder [Not Recovered/Not Resolved]
  - Cardiac disorder [Not Recovered/Not Resolved]
